FAERS Safety Report 24552996 (Version 2)
Quarter: 2024Q4

REPORT INFORMATION
  Report Type: Report from Study
  Country: CA (occurrence: CA)
  Receive Date: 20241027
  Receipt Date: 20241112
  Transmission Date: 20250114
  Serious: Yes (Other)
  Sender: ABBVIE
  Company Number: CA-ABBVIE-5945141

PATIENT
  Age: 71 Year
  Sex: Female

DRUGS (2)
  1. FOSCARBIDOPA\FOSLEVODOPA [Suspect]
     Active Substance: FOSCARBIDOPA\FOSLEVODOPA
     Indication: Parkinson^s disease
     Route: 058
     Dates: start: 20240910
  2. MUPIROCIN [Concomitant]
     Active Substance: MUPIROCIN
     Indication: Product used for unknown indication

REACTIONS (13)
  - Dental operation [Unknown]
  - Fall [Unknown]
  - On and off phenomenon [Unknown]
  - Injection site reaction [Recovering/Resolving]
  - Costochondritis [Unknown]
  - Erythema [Unknown]
  - Discomfort [Unknown]
  - Palpitations [Unknown]
  - Neck pain [Unknown]
  - Discomfort [Unknown]
  - Malaise [Unknown]
  - Infusion site reaction [Unknown]
  - Infusion site irritation [Unknown]

NARRATIVE: CASE EVENT DATE: 20240101
